FAERS Safety Report 21649303 (Version 1)
Quarter: 2022Q4

REPORT INFORMATION
  Report Type: Spontaneous
  Country: CN (occurrence: CN)
  Receive Date: 20221128
  Receipt Date: 20221128
  Transmission Date: 20230112
  Serious: Yes (Death, Other)
  Sender: FDA-Public Use
  Company Number: CN-SUN PHARMACEUTICAL INDUSTRIES LTD-2022R1-365918

PATIENT
  Age: 61 Year
  Sex: Male

DRUGS (5)
  1. METHYLPREDNISOLONE [Suspect]
     Active Substance: METHYLPREDNISOLONE
     Indication: Nocardiosis
     Dosage: UNK
     Route: 065
  2. ALBUTEROL [Suspect]
     Active Substance: ALBUTEROL
     Indication: Nocardiosis
     Dosage: UNK
     Route: 065
  3. DOXOFYLLINE [Suspect]
     Active Substance: DOXOFYLLINE
     Indication: Nocardiosis
     Dosage: UNK
     Route: 065
  4. IPRATROPIUM BROMIDE [Suspect]
     Active Substance: IPRATROPIUM BROMIDE
     Indication: Nocardiosis
     Dosage: UNK
     Route: 065
  5. DOPAMINE [Suspect]
     Active Substance: DOPAMINE HYDROCHLORIDE
     Indication: Hypertension
     Dosage: UNK
     Route: 016

REACTIONS (1)
  - Drug ineffective [Fatal]
